FAERS Safety Report 23642577 (Version 1)
Quarter: 2024Q1

REPORT INFORMATION
  Report Type: Spontaneous
  Country: US (occurrence: US)
  Receive Date: 20240318
  Receipt Date: 20240318
  Transmission Date: 20240410
  Serious: No
  Sender: FDA-Public Use
  Company Number: US-ESPERIONTHERAPEUTICS-2023USA01211

PATIENT
  Age: 81 Year
  Sex: Female

DRUGS (2)
  1. NEXLETOL [Suspect]
     Active Substance: BEMPEDOIC ACID
     Indication: Blood cholesterol abnormal
     Dosage: 180 MILLIGRAM, QD
     Route: 048
     Dates: start: 202306
  2. EZETIMIBE [Concomitant]
     Active Substance: EZETIMIBE
     Dosage: UNK
     Route: 065

REACTIONS (3)
  - High density lipoprotein decreased [Unknown]
  - Decreased activity [Unknown]
  - Low density lipoprotein decreased [Unknown]

NARRATIVE: CASE EVENT DATE: 20230101
